FAERS Safety Report 17826234 (Version 5)
Quarter: 2020Q3

REPORT INFORMATION
  Report Type: Report from Study
  Country: NL (occurrence: NL)
  Receive Date: 20200526
  Receipt Date: 20200713
  Transmission Date: 20201102
  Serious: Yes (Hospitalization, Other)
  Sender: FDA-Public Use
  Company Number: NL-ACTELION-A-CH2019-195468

PATIENT
  Age: 73 Year
  Sex: Female
  Weight: 65 kg

DRUGS (44)
  1. FLUOROURACIL. [Concomitant]
     Active Substance: FLUOROURACIL
     Dosage: UNK
     Route: 048
     Dates: start: 201903, end: 20200426
  2. METOPROLOL. [Concomitant]
     Active Substance: METOPROLOL
     Dosage: UNK
     Route: 048
     Dates: start: 20200603
  3. FLUTICASONE. [Concomitant]
     Active Substance: FLUTICASONE
     Dosage: UNK
     Dates: start: 20191003
  4. PARACETAMOL [Concomitant]
     Active Substance: ACETAMINOPHEN
     Indication: PAIN
     Dosage: UNK
     Route: 048
     Dates: start: 20200429, end: 20200612
  5. MORPHINE [Concomitant]
     Active Substance: MORPHINE
     Indication: PAIN
     Dosage: UNK
     Route: 042
     Dates: start: 20200511, end: 20200512
  6. ADCIRCA [Concomitant]
     Active Substance: TADALAFIL
     Dosage: 40 MG, QD
     Route: 048
     Dates: start: 20190425
  7. OXYNORM [Concomitant]
     Active Substance: OXYCODONE HYDROCHLORIDE
     Indication: PAIN
     Dosage: UNK
     Route: 048
     Dates: start: 20200512, end: 20200607
  8. FENTANYL. [Concomitant]
     Active Substance: FENTANYL
     Indication: SURGERY
     Dosage: UNK
     Route: 042
     Dates: start: 20200511, end: 20200512
  9. NOVORAPID [Concomitant]
     Active Substance: INSULIN ASPART
     Indication: SURGERY
     Dosage: UNK
     Route: 042
     Dates: start: 20200511, end: 20200512
  10. MIDAZOLAM. [Concomitant]
     Active Substance: MIDAZOLAM
     Indication: SURGERY
     Dosage: UNK
     Route: 042
     Dates: start: 20200511, end: 20200512
  11. PROPOFOL. [Concomitant]
     Active Substance: PROPOFOL
     Indication: SURGERY
     Dosage: UNK
     Route: 042
     Dates: start: 20200511, end: 20200512
  12. APIXABAN [Concomitant]
     Active Substance: APIXABAN
     Indication: DEEP VEIN THROMBOSIS
     Dosage: UNK
     Route: 048
     Dates: start: 2018, end: 20200508
  13. REMIFENTANIL [Concomitant]
     Active Substance: REMIFENTANIL
     Indication: SURGERY
     Dosage: UNK
     Route: 042
     Dates: start: 20200511, end: 20200512
  14. CLEMASTINE [Concomitant]
     Active Substance: CLEMASTINE
     Indication: HYPERSENSITIVITY
     Dosage: UNK
     Route: 042
     Dates: start: 20200504, end: 20200505
  15. APIXABAN [Concomitant]
     Active Substance: APIXABAN
     Dosage: UNK
  16. ONDANSETRON [Concomitant]
     Active Substance: ONDANSETRON
     Indication: NAUSEA
     Dosage: UNK
     Route: 042
     Dates: start: 20200512, end: 20200513
  17. OXYCONTIN [Concomitant]
     Active Substance: OXYCODONE HYDROCHLORIDE
     Indication: PAIN
     Dosage: UNK
     Route: 048
     Dates: start: 20200512, end: 20200522
  18. CALCIUM GLUCONATE. [Concomitant]
     Active Substance: CALCIUM GLUCONATE
     Indication: SURGERY
     Dosage: UNK
     Route: 042
     Dates: start: 20200511, end: 20200512
  19. LIDOCAINE. [Concomitant]
     Active Substance: LIDOCAINE
     Dosage: UNK
     Route: 058
     Dates: start: 20200504, end: 20200505
  20. HEPARIN [Concomitant]
     Active Substance: HEPARIN SODIUM
     Indication: PROPHYLAXIS
     Dosage: UNK
     Route: 042
     Dates: start: 20200511, end: 20200512
  21. PREDNISOLONE. [Concomitant]
     Active Substance: PREDNISOLONE
     Indication: PROPHYLAXIS
     Dosage: UNK
     Route: 048
     Dates: start: 20200511, end: 20200512
  22. OPSUMIT [Suspect]
     Active Substance: MACITENTAN
     Indication: PULMONARY ARTERIAL HYPERTENSION
     Dosage: 10 MG, QD
     Route: 048
     Dates: start: 20190321
  23. HYDROCHLOORTHIAZIDE [Concomitant]
     Active Substance: HYDROCHLOROTHIAZIDE
     Dosage: UNK
     Route: 048
     Dates: start: 201901, end: 20200426
  24. ADCIRCA [Concomitant]
     Active Substance: TADALAFIL
     Indication: PULMONARY ARTERIAL HYPERTENSION
     Dosage: 20 MG, QD
     Route: 048
     Dates: start: 20190422, end: 20190425
  25. FIBRINOGEN [Concomitant]
     Active Substance: FIBRINOGEN HUMAN
     Indication: SURGERY
     Dosage: UNK
     Route: 050
     Dates: start: 20200511, end: 20200512
  26. VOLUVEN [HETASTARCH] [Concomitant]
     Indication: SURGERY
     Dosage: UNK
     Route: 042
     Dates: start: 20200511, end: 20200512
  27. NITRAZEPAM [Concomitant]
     Active Substance: NITRAZEPAM
     Indication: INSOMNIA
     Dosage: UNK
     Route: 048
     Dates: start: 201811
  28. METOPROLOL. [Concomitant]
     Active Substance: METOPROLOL
     Dosage: UNK
     Route: 048
     Dates: start: 201811, end: 201901
  29. PROPOFOL. [Concomitant]
     Active Substance: PROPOFOL
     Indication: CARDIOVERSION
     Dosage: UNK
     Route: 042
     Dates: start: 20200605, end: 20200606
  30. PROTAMINE [Concomitant]
     Active Substance: PROTAMINE
     Indication: SURGERY
     Dosage: UNK
     Route: 042
     Dates: start: 20200511, end: 20200512
  31. ROCURONIUM [Concomitant]
     Active Substance: ROCURONIUM BROMIDE
     Indication: SURGERY
     Dosage: UNK
     Route: 042
     Dates: start: 20200511, end: 20200512
  32. HEPARIN [Concomitant]
     Active Substance: HEPARIN SODIUM
     Indication: ANGIOCARDIOGRAM
     Dosage: UNK
     Route: 050
     Dates: start: 20200504, end: 20200505
  33. HYDROCORTISONE. [Concomitant]
     Active Substance: HYDROCORTISONE
     Indication: HYPERSENSITIVITY
     Dosage: UNK
     Route: 042
     Dates: start: 20200504, end: 20200505
  34. HYPROMELLOSE [Concomitant]
     Active Substance: HYPROMELLOSES
     Indication: DRY EYE
     Dosage: UNK, PRN
     Dates: start: 201903, end: 20200426
  35. TIOTROPIUM [Concomitant]
     Active Substance: TIOTROPIUM
     Indication: CHRONIC OBSTRUCTIVE PULMONARY DISEASE
     Dosage: UNK
     Route: 055
     Dates: start: 20190131
  36. BECLOMETASONE [Concomitant]
     Active Substance: BECLOMETHASONE DIPROPIONATE
     Dosage: UNK
     Route: 050
     Dates: start: 20191212, end: 20200426
  37. EPHEDRINE. [Concomitant]
     Active Substance: EPHEDRINE
     Indication: SURGERY
     Dosage: UNK
     Route: 042
     Dates: start: 20200511, end: 20200512
  38. LIDOCAINE. [Concomitant]
     Active Substance: LIDOCAINE
     Indication: ANGIOCARDIOGRAM
     Dosage: UNK
     Route: 050
     Dates: start: 20200511, end: 20200512
  39. TRANEXAMIC ACID. [Concomitant]
     Active Substance: TRANEXAMIC ACID
     Indication: HAEMORRHAGE PROPHYLAXIS
     Dosage: UNK
     Route: 042
     Dates: start: 20200511, end: 20200512
  40. IPRATROPIUM;SALBUTAMOL [Concomitant]
     Active Substance: ALBUTEROL\IPRATROPIUM
     Dosage: UNK
     Route: 055
     Dates: start: 202005, end: 20200531
  41. PREDNISOLONE. [Concomitant]
     Active Substance: PREDNISOLONE
     Indication: ANGIOCARDIOGRAM
     Dosage: UNK
     Route: 048
     Dates: start: 20200504, end: 20200505
  42. NADROPARINE [Concomitant]
     Active Substance: NADROPARIN
     Indication: THROMBOSIS PROPHYLAXIS
     Dosage: UNK
     Route: 058
     Dates: start: 20200511, end: 20200612
  43. MOVICOLON [Concomitant]
     Active Substance: POLYETHYLENE GLYCOL 3350\POTASSIUM CHLORIDE\SODIUM BICARBONATE\SODIUM CHLORIDE
     Indication: CONSTIPATION
     Dosage: UNK
     Route: 048
     Dates: start: 20200502
  44. MUPIROCINE [Concomitant]
     Active Substance: MUPIROCIN
     Dosage: UNK
     Route: 050
     Dates: start: 20200508, end: 20200518

REACTIONS (31)
  - Pleural effusion [Recovering/Resolving]
  - Cardioversion [Unknown]
  - Pneumonia [Recovered/Resolved]
  - C-reactive protein increased [Unknown]
  - Streptococcal endocarditis [Recovering/Resolving]
  - Condition aggravated [Recovering/Resolving]
  - Tricuspid valve repair [Recovered/Resolved]
  - Dyspnoea exertional [Recovered/Resolved]
  - Cough [Unknown]
  - Atrial flutter [Recovered/Resolved]
  - Myocardial ischaemia [Unknown]
  - Mitral valve incompetence [Recovering/Resolving]
  - Angina pectoris [Recovered/Resolved]
  - Dizziness [Recovered/Resolved]
  - Creatinine renal clearance decreased [Not Recovered/Not Resolved]
  - Night sweats [Recovering/Resolving]
  - Hypokalaemia [Recovered/Resolved]
  - Tricuspid valve prolapse [Recovering/Resolving]
  - Cardiac failure [Not Recovered/Not Resolved]
  - Chills [Recovering/Resolving]
  - Fatigue [Unknown]
  - Atrial fibrillation [Recovered/Resolved]
  - Renal impairment [Not Recovered/Not Resolved]
  - Streptococcal bacteraemia [Recovering/Resolving]
  - Mitral valve replacement [Recovered/Resolved]
  - Malaise [Recovered/Resolved]
  - Pyrexia [Unknown]
  - Generalised oedema [Unknown]
  - Hypotension [Unknown]
  - Dyspnoea [Recovering/Resolving]
  - Chest pain [Recovering/Resolving]

NARRATIVE: CASE EVENT DATE: 20190720
